FAERS Safety Report 7584413-5 (Version None)
Quarter: 2011Q2

REPORT INFORMATION
  Report Type: 
  Country: None (occurrence: None)
  Receive Date: 20110630
  Receipt Date: 20110517
  Transmission Date: 20111010
  Serious: Yes (Other)
  Sender: FDA-Public Use
  Company Number: US-BAYER-201031316NA

PATIENT
  Age: 26 Year
  Sex: Female
  Weight: 63.492 kg

DRUGS (7)
  1. YAZ [Suspect]
     Indication: CONTRACEPTION
     Dosage: 1 DF, QD
     Route: 048
     Dates: start: 20030101, end: 20090101
  2. REGLAN [Concomitant]
     Dosage: 10 UNK, UNK
     Route: 048
  3. PERCOCET [Concomitant]
     Dosage: 5/325 MG
     Route: 048
  4. PROTONIX [Concomitant]
     Dosage: UNK UNK, QD
     Route: 048
  5. PEPCID [Concomitant]
     Dosage: UNK UNK, BID
     Route: 048
  6. PRILOSEC [Concomitant]
     Dosage: 40 MG, UNK
     Route: 048
  7. YASMIN [Suspect]
     Route: 048

REACTIONS (3)
  - CHOLECYSTECTOMY [None]
  - CHOLELITHIASIS [None]
  - INJURY [None]
